FAERS Safety Report 6612064-5 (Version None)
Quarter: 2010Q1

REPORT INFORMATION
  Report Type: 
  Country: None (occurrence: None)
  Receive Date: 20100303
  Receipt Date: 20100221
  Transmission Date: 20100710
  Serious: Yes (Other)
  Sender: FDA-Public Use
  Company Number: B0633795A

PATIENT
  Age: 36 Year

DRUGS (1)
  1. LAMIVUDINE [Suspect]
     Route: 065

REACTIONS (4)
  - ABDOMINAL PAIN [None]
  - CALCULUS URETERIC [None]
  - PAIN [None]
  - RED BLOOD CELLS URINE POSITIVE [None]
